FAERS Safety Report 9846494 (Version 1)
Quarter: 2014Q1

REPORT INFORMATION
  Report Type: Spontaneous
  Country: US (occurrence: None)
  Receive Date: 20140123
  Receipt Date: 20140123
  Transmission Date: 20141002
  Serious: Yes (Other)
  Sender: FDA-Public Use
  Company Number: None

PATIENT
  Age: 66 Year
  Sex: Female
  Weight: 68.04 kg

DRUGS (1)
  1. ATORVASTATIN 10MG RANBAXY [Suspect]
     Dosage: 10 MG  90 PILLS  ONCE DAILY  TAKEN BY MOUTH
     Route: 048

REACTIONS (3)
  - Myalgia [None]
  - Gait disturbance [None]
  - Product substitution issue [None]
